FAERS Safety Report 6807973-8 (Version None)
Quarter: 2010Q2

REPORT INFORMATION
  Report Type: 
  Country: None (occurrence: None)
  Receive Date: 20100629
  Receipt Date: 20090316
  Transmission Date: 20101027
  Serious: No
  Sender: FDA-Public Use
  Company Number: US-PFIZER INC-2009185133

PATIENT
  Sex: Female
  Weight: 61.2 kg

DRUGS (6)
  1. XANAX [Suspect]
     Dosage: FREQUENCY: PRN,
  2. LIPITOR [Suspect]
     Indication: BLOOD CHOLESTEROL ABNORMAL
     Dosage: UNK
  3. NEXIUM [Suspect]
     Indication: GASTROOESOPHAGEAL REFLUX DISEASE
     Dosage: UNK
  4. TENORMIN [Concomitant]
     Dosage: UNK
  5. PROCARDIA [Concomitant]
     Dosage: UNK
  6. ACETYLSALICYLIC ACID [Concomitant]
     Dosage: UNK

REACTIONS (5)
  - BLOOD CHOLESTEROL INCREASED [None]
  - DIARRHOEA [None]
  - GASTROOESOPHAGEAL REFLUX DISEASE [None]
  - HEARING IMPAIRED [None]
  - WRONG TECHNIQUE IN DRUG USAGE PROCESS [None]
